FAERS Safety Report 5525131-4 (Version None)
Quarter: 2007Q4

REPORT INFORMATION
  Report Type: 
  Country: None (occurrence: None)
  Receive Date: 20071119
  Receipt Date: 20071119
  Transmission Date: 20080405
  Serious: Yes (Other)
  Sender: FDA-Public Use
  Company Number: None

PATIENT
  Age: 71 Year
  Sex: Male
  Weight: 111 kg

DRUGS (1)
  1. VANCOMYCIN HCL [Suspect]
     Dosage: 750MG Q12H IV DRIP; 3 DOSES
     Route: 041
     Dates: start: 20071113, end: 20071114

REACTIONS (1)
  - NEPHROPATHY TOXIC [None]
